FAERS Safety Report 13645000 (Version 1)
Quarter: 2017Q2

REPORT INFORMATION
  Report Type: Spontaneous
  Country: US (occurrence: US)
  Receive Date: 20170612
  Receipt Date: 20170612
  Transmission Date: 20170830
  Serious: No
  Sender: FDA-Public Use
  Company Number: US-ROCHE-1407384

PATIENT
  Sex: Female

DRUGS (5)
  1. MAG OXIDE [Concomitant]
     Active Substance: MAGNESIUM OXIDE
  2. OXYCODONE [Concomitant]
     Active Substance: OXYCODONE
  3. LORAZEPAM. [Concomitant]
     Active Substance: LORAZEPAM
  4. XELODA [Suspect]
     Active Substance: CAPECITABINE
     Indication: HEPATIC CANCER
     Route: 048
  5. URSODIOL. [Concomitant]
     Active Substance: URSODIOL

REACTIONS (2)
  - Dyspnoea [Unknown]
  - Chest pain [Unknown]
